FAERS Safety Report 8816251 (Version 1)
Quarter: 2012Q4

REPORT INFORMATION
  Report Type: 
  Country: GB (occurrence: GB)
  Receive Date: 20120930
  Receipt Date: 20120930
  Transmission Date: 20130627
  Serious: Yes (Other)
  Sender: FDA-Public Use
  Company Number: GB-009507513-1209USA011190

PATIENT
  Age: 31 Year
  Sex: Female

DRUGS (5)
  1. IMPLANON [Suspect]
     Indication: CONTRACEPTION
     Dosage: UNK
     Route: 059
     Dates: start: 200909, end: 20120906
  2. TEGRETOL RETARD [Interacting]
     Indication: EPILEPSY
     Route: 048
  3. CLOBAZAM [Concomitant]
     Indication: EPILEPSY
     Route: 048
  4. LEVETIRACETAM [Concomitant]
     Route: 048
  5. LISINOPRIL [Concomitant]
     Indication: HEART DISEASE CONGENITAL
     Dosage: UNK

REACTIONS (3)
  - Drug interaction [Unknown]
  - Pregnancy with implant contraceptive [Unknown]
  - Maternal exposure during pregnancy [None]
